FAERS Safety Report 9512205 (Version 1)
Quarter: 2013Q3

REPORT INFORMATION
  Report Type: Report from Study
  Country: CA (occurrence: CA)
  Receive Date: 20130910
  Receipt Date: 20130910
  Transmission Date: 20140515
  Serious: Yes (Hospitalization)
  Sender: FDA-Public Use
  Company Number: CA-JNJFOC-20130902113

PATIENT
  Age: 61 Year
  Sex: Male
  Weight: 81.8 kg

DRUGS (2)
  1. REMICADE [Suspect]
     Indication: COLITIS ULCERATIVE
     Dosage: 1ST INFUSION
     Route: 042
     Dates: start: 20130731
  2. REMICADE [Suspect]
     Indication: COLITIS ULCERATIVE
     Dosage: 2ND INFUSION
     Route: 042
     Dates: start: 20130812

REACTIONS (2)
  - Clostridium difficile infection [Not Recovered/Not Resolved]
  - Obstruction [Unknown]
